FAERS Safety Report 5032694-4 (Version None)
Quarter: 2006Q2

REPORT INFORMATION
  Report Type: 
  Country: None (occurrence: None)
  Receive Date: 20060622
  Receipt Date: 20060525
  Transmission Date: 20061013
  Serious: Yes (Death)
  Sender: FDA-Public Use
  Company Number: 2006AP02380

PATIENT
  Age: 30379 Day
  Sex: Female
  Weight: 65 kg

DRUGS (9)
  1. IRESSA [Suspect]
     Indication: NON-SMALL CELL LUNG CANCER STAGE I
     Route: 048
     Dates: start: 20060413, end: 20060518
  2. IRESSA [Suspect]
     Indication: LUNG ADENOCARCINOMA RECURRENT
     Route: 048
     Dates: start: 20060413, end: 20060518
  3. LAC B [Concomitant]
     Indication: PROPHYLAXIS AGAINST DIARRHOEA
     Route: 048
  4. CEREKINON [Concomitant]
     Indication: PROPHYLAXIS AGAINST DIARRHOEA
     Route: 048
  5. BLOPRESS [Concomitant]
     Indication: HYPERTENSION
     Route: 048
  6. VASOLAN [Concomitant]
     Indication: PROPHYLAXIS
     Route: 048
  7. ASVERIN [Concomitant]
     Indication: COUGH
     Route: 048
  8. PAXIL [Concomitant]
     Indication: ANXIETY
     Route: 048
  9. HOKUNALIN [Concomitant]
     Indication: COUGH
     Route: 048

REACTIONS (1)
  - ACUTE RESPIRATORY DISTRESS SYNDROME [None]
